FAERS Safety Report 6195425-0 (Version None)
Quarter: 2009Q2

REPORT INFORMATION
  Report Type: 
  Country: None (occurrence: None)
  Receive Date: 20090515
  Receipt Date: 20090508
  Transmission Date: 20091009
  Serious: Yes (Other)
  Sender: FDA-Public Use
  Company Number: CHPA2009US11266

PATIENT
  Age: 62 Year
  Sex: Male

DRUGS (2)
  1. ACETYLSALICYLIC ACID             (ACETYLSALICYCLIC ACID) UNKNOWN [Suspect]
     Indication: ANTIPLATELET THERAPY
     Dosage: ORAL
     Route: 048
  2. CLOPIDOGREL [Suspect]
     Indication: ANTIPLATELET THERAPY

REACTIONS (1)
  - GASTRITIS EROSIVE [None]
